FAERS Safety Report 15348723 (Version 1)
Quarter: 2018Q3

REPORT INFORMATION
  Report Type: Spontaneous
  Country: CN (occurrence: CN)
  Receive Date: 20180904
  Receipt Date: 20180904
  Transmission Date: 20181010
  Serious: Yes (Other)
  Sender: FDA-Public Use
  Company Number: CN-PFIZER INC-2018348903

PATIENT
  Age: 10 Year
  Sex: Male
  Weight: 30 kg

DRUGS (2)
  1. MEDROL [Suspect]
     Active Substance: METHYLPREDNISOLONE
     Indication: NEPHROTIC SYNDROME
     Dosage: 24 MG, ALTERNATE DAY
     Route: 048
     Dates: start: 20180416
  2. CORTICOTROPIN [Suspect]
     Active Substance: CORTICOTROPIN
     Indication: NEPHROTIC SYNDROME
     Dosage: 12 IU, 1X/DAY
     Route: 041
     Dates: start: 20180630

REACTIONS (1)
  - Ocular hypertension [Unknown]

NARRATIVE: CASE EVENT DATE: 20180704
